FAERS Safety Report 11228542 (Version 2)
Quarter: 2016Q1

REPORT INFORMATION
  Report Type: Spontaneous
  Country: EE (occurrence: EE)
  Receive Date: 20150630
  Receipt Date: 20160106
  Transmission Date: 20160525
  Serious: Yes (Other)
  Sender: FDA-Public Use
  Company Number: EE-GILEAD-2015-0160678

PATIENT
  Age: 71 Year
  Sex: Female

DRUGS (7)
  1. ALLOPURINOL NYCOMED [Concomitant]
     Indication: CHRONIC OBSTRUCTIVE PULMONARY DISEASE
     Route: 048
  2. MAREVAN [Concomitant]
     Active Substance: WARFARIN SODIUM
     Route: 048
  3. AMBRISENTAN [Suspect]
     Active Substance: AMBRISENTAN
     Indication: PULMONARY ARTERIAL HYPERTENSION
     Dosage: 5 MG, QD
     Route: 048
     Dates: start: 20141215, end: 20150608
  4. REVATIO [Concomitant]
     Active Substance: SILDENAFIL CITRATE
     Indication: PULMONARY ARTERIAL HYPERTENSION
     Dosage: 20 MG, BID
     Route: 048
     Dates: start: 201406
  5. SPIRIVA [Concomitant]
     Active Substance: TIOTROPIUM BROMIDE MONOHYDRATE
     Indication: CHRONIC OBSTRUCTIVE PULMONARY DISEASE
     Dosage: 5 UG, QD
     Route: 055
  6. ONBREZ BREEZHALER [Concomitant]
     Active Substance: INDACATEROL
     Indication: CHRONIC OBSTRUCTIVE PULMONARY DISEASE
     Dosage: 150 UG, QD
     Route: 055
  7. ROFERON-A [Suspect]
     Active Substance: INTERFERON ALFA-2A
     Indication: POLYCYTHAEMIA VERA
     Dosage: EVERY SECOND DAY
     Route: 058
     Dates: start: 2006, end: 20151009

REACTIONS (1)
  - Thrombocytopenia [Recovering/Resolving]

NARRATIVE: CASE EVENT DATE: 20141215
